FAERS Safety Report 6831327-1 (Version None)
Quarter: 2010Q3

REPORT INFORMATION
  Report Type: 
  Country: None (occurrence: None)
  Receive Date: 20100707
  Receipt Date: 20100623
  Transmission Date: 20110219
  Serious: Yes (Hospitalization)
  Sender: FDA-Public Use
  Company Number: 7009060

PATIENT
  Sex: Male

DRUGS (1)
  1. REBIF [Suspect]
     Indication: PRODUCT USED FOR UNKNOWN INDICATION

REACTIONS (5)
  - BLOOD DISORDER [None]
  - BLOOD GLUCOSE ABNORMAL [None]
  - CONVULSION [None]
  - PANCREATIC DISORDER [None]
  - RENAL DISORDER [None]
